FAERS Safety Report 10047856 (Version 1)
Quarter: 2014Q1

REPORT INFORMATION
  Report Type: Spontaneous
  Country: US (occurrence: None)
  Receive Date: 20140311
  Receipt Date: 20140311
  Transmission Date: 20141002
  Serious: Yes (Other)
  Sender: FDA-Public Use
  Company Number: 2014P1001767

PATIENT
  Age: 16 Year
  Sex: Male

DRUGS (1)
  1. MYORISAN [Suspect]
     Indication: ACNE CYSTIC
     Dates: start: 20131204

REACTIONS (6)
  - Depression [None]
  - Mood altered [None]
  - Aggression [None]
  - Crying [None]
  - Decreased appetite [None]
  - Hypersomnia [None]
